FAERS Safety Report 6856398-8 (Version None)
Quarter: 2010Q3

REPORT INFORMATION
  Report Type: 
  Country: None (occurrence: None)
  Receive Date: 20100716
  Receipt Date: 20100716
  Transmission Date: 20110219
  Serious: Yes (Hospitalization)
  Sender: FDA-Public Use
  Company Number: None

PATIENT
  Sex: Female
  Weight: 65.7716 kg

DRUGS (1)
  1. IMPLANON 68MG SHERING-PLOUGH [Suspect]
     Indication: CONTRACEPTION
     Dates: start: 20091215, end: 20100223

REACTIONS (1)
  - SYNCOPE [None]
